FAERS Safety Report 17611900 (Version 1)
Quarter: 2020Q2

REPORT INFORMATION
  Report Type: Spontaneous
  Country: US (occurrence: US)
  Receive Date: 20200401
  Receipt Date: 20200401
  Transmission Date: 20200713
  Serious: No
  Sender: FDA-Public Use
  Company Number: US-009507513-2003USA010795

PATIENT
  Age: 62 Year
  Sex: Male

DRUGS (1)
  1. PROVENTIL [Suspect]
     Active Substance: ALBUTEROL
     Indication: ASTHMA
     Dosage: 1 PUFF (DOSAGE FORM), EVERY 8 HOURS (Q8H) AS NEEDED, ORAL AEROSOL
     Route: 048
     Dates: start: 20200329

REACTIONS (5)
  - Product prescribing issue [Unknown]
  - Product quality issue [Unknown]
  - Product use issue [Unknown]
  - Poor quality device used [Unknown]
  - Incorrect dose administered [Unknown]

NARRATIVE: CASE EVENT DATE: 20200329
